FAERS Safety Report 6992427-9 (Version None)
Quarter: 2010Q3

REPORT INFORMATION
  Report Type: 
  Country: None (occurrence: None)
  Receive Date: 20100917
  Receipt Date: 20100908
  Transmission Date: 20110219
  Serious: Yes (Other)
  Sender: FDA-Public Use
  Company Number: PHBS2006JP16019

PATIENT
  Age: 58 Year
  Sex: Male

DRUGS (8)
  1. NEORAL [Suspect]
     Indication: PSORIATIC ARTHROPATHY
     Dosage: UNK, UNK
     Route: 048
     Dates: start: 19990101, end: 20030601
  2. NEORAL [Suspect]
     Dosage: 150 MG/D
     Route: 048
     Dates: start: 20041115, end: 20050115
  3. TIGASON [Concomitant]
     Indication: PSORIASIS
     Route: 048
  4. METHOTREXATE [Concomitant]
     Indication: PSORIASIS
     Dosage: UNK
     Route: 048
  5. STEROIDS NOS [Concomitant]
     Indication: PSORIASIS
     Route: 061
  6. VITAMIN D3 [Concomitant]
     Indication: PSORIASIS
     Route: 061
  7. ANALGESICS [Concomitant]
  8. LECTISOL [Concomitant]
     Indication: PEMPHIGOID
     Dosage: 60 MG/D
     Route: 048

REACTIONS (5)
  - BLOOD CREATININE INCREASED [None]
  - BLOOD UREA INCREASED [None]
  - PEMPHIGOID [None]
  - PSORIASIS [None]
  - RENAL IMPAIRMENT [None]
